FAERS Safety Report 16126910 (Version 1)
Quarter: 2019Q1

REPORT INFORMATION
  Report Type: Spontaneous
  Country: NL (occurrence: NL)
  Receive Date: 20190328
  Receipt Date: 20190328
  Transmission Date: 20190418
  Serious: Yes (Congenital Anomaly)
  Sender: FDA-Public Use
  Company Number: NL-ACCORD-116062

PATIENT
  Sex: Female
  Weight: 3 kg

DRUGS (2)
  1. FOLIC ACID. [Concomitant]
     Active Substance: FOLIC ACID
  2. ATORVASTATIN/ATORVASTATIN CALCIUM [Suspect]
     Active Substance: ATORVASTATIN CALCIUM
     Indication: HYPERCHOLESTEROLAEMIA
     Dosage: STRENGTH 40 MG (MILLIGRAM)
     Route: 048

REACTIONS (2)
  - Congenital bowing of long bones [Not Recovered/Not Resolved]
  - Foetal exposure during pregnancy [Unknown]
